FAERS Safety Report 7332593-9 (Version None)
Quarter: 2011Q1

REPORT INFORMATION
  Report Type: 
  Country: None (occurrence: None)
  Receive Date: 20110304
  Receipt Date: 20110228
  Transmission Date: 20110831
  Serious: Yes (Life-Threatening, Hospitalization)
  Sender: FDA-Public Use
  Company Number: PL-SANOFI-AVENTIS-2011SA000153

PATIENT
  Age: 54 Year
  Sex: Male
  Weight: 103 kg

DRUGS (7)
  1. BLINDED THERAPY [Suspect]
     Route: 048
     Dates: start: 20101109, end: 20101122
  2. PREDNISONE [Suspect]
     Indication: PROSTATE CANCER
     Dates: start: 20101019
  3. PREDNISONE [Suspect]
     Dates: start: 20101109, end: 20101130
  4. DOCETAXEL [Suspect]
     Indication: PROSTATE CANCER
     Dates: start: 20101019, end: 20101019
  5. DOCETAXEL [Suspect]
     Dates: start: 20101109, end: 20101109
  6. BLINDED THERAPY [Suspect]
     Indication: PROSTATE CANCER
     Route: 048
     Dates: start: 20101019
  7. TERTENSIF [Concomitant]
     Dates: start: 20050101

REACTIONS (1)
  - PERIPHERAL ISCHAEMIA [None]
